FAERS Safety Report 8231136-5 (Version None)
Quarter: 2012Q1

REPORT INFORMATION
  Report Type: 
  Country: None (occurrence: None)
  Receive Date: 20120323
  Receipt Date: 20120319
  Transmission Date: 20120608
  Serious: Yes (Other)
  Sender: FDA-Public Use
  Company Number: US-PFIZER INC-2012071536

PATIENT
  Sex: Female
  Weight: 61.224 kg

DRUGS (5)
  1. BELIMUMAB [Concomitant]
     Indication: SYSTEMIC LUPUS ERYTHEMATOSUS
     Dosage: 700 MG, UNK
     Route: 042
  2. PRISTIQ [Concomitant]
     Dosage: UNK
  3. METHOTREXATE [Concomitant]
     Indication: SYSTEMIC LUPUS ERYTHEMATOSUS
     Dosage: UNK
     Route: 048
  4. HYDROXYCHLOROQUINE [Concomitant]
     Dosage: UNK
  5. LYRICA [Suspect]
     Indication: FIBROMYALGIA
     Dosage: 75 MG, 2X/DAY
     Route: 048

REACTIONS (6)
  - CONVULSION [None]
  - SYSTEMIC LUPUS ERYTHEMATOSUS [None]
  - SPINAL COLUMN STENOSIS [None]
  - INFECTION [None]
  - BRAIN INJURY [None]
  - EPILEPSY [None]
